FAERS Safety Report 21993620 (Version 2)
Quarter: 2023Q1

REPORT INFORMATION
  Report Type: Spontaneous
  Country: US (occurrence: None)
  Receive Date: 20230215
  Receipt Date: 20230331
  Transmission Date: 20230417
  Serious: No
  Sender: FDA-Public Use
  Company Number: 2023A029542

PATIENT
  Sex: Male
  Weight: 97 kg

DRUGS (1)
  1. BYDUREON BCISE [Suspect]
     Active Substance: EXENATIDE
     Indication: Type 2 diabetes mellitus
     Route: 058

REACTIONS (6)
  - Haemorrhage [Unknown]
  - Strabismus [Unknown]
  - Weight decreased [Unknown]
  - Abdominal fat apron [Unknown]
  - Device leakage [Unknown]
  - Incorrect dose administered by device [Unknown]
